FAERS Safety Report 8875994 (Version 1)
Quarter: 2012Q4

REPORT INFORMATION
  Report Type: 
  Country: AU (occurrence: AU)
  Receive Date: 20121030
  Receipt Date: 20121030
  Transmission Date: 20130627
  Serious: Yes (Hospitalization)
  Sender: FDA-Public Use
  Company Number: PHHY2012AU096164

PATIENT
  Age: 31 Year
  Sex: Male

DRUGS (4)
  1. FLUOROURACIL [Suspect]
     Indication: COLORECTAL CANCER
     Dosage: 400 mg/m2, UNK
  2. FLUOROURACIL [Suspect]
     Dosage: 2400 mg/m2, UNK
  3. LEUCOVORIN [Concomitant]
     Dosage: 50 mg, UNK
  4. OXALIPLATIN [Concomitant]
     Dosage: 85 mg/m2, UNK

REACTIONS (4)
  - Myocardial infarction [Recovered/Resolved]
  - Myocardial ischaemia [Recovered/Resolved]
  - Chest pain [Recovered/Resolved]
  - Electrocardiogram ST segment elevation [Recovered/Resolved]
